FAERS Safety Report 9639048 (Version 4)
Quarter: 2014Q2

REPORT INFORMATION
  Report Type: Report from Study
  Country: JP (occurrence: JP)
  Receive Date: 20131022
  Receipt Date: 20140407
  Transmission Date: 20141212
  Serious: Yes (Hospitalization, Other)
  Sender: FDA-Public Use
  Company Number: JP-UCBSA-100628

PATIENT
  Age: 44 Year
  Sex: Female
  Weight: 60 kg

DRUGS (4)
  1. CIMZIA [Suspect]
     Indication: RHEUMATOID ARTHRITIS
     Dosage: 200 MG SYRINGE
     Route: 058
     Dates: start: 20130726, end: 20130920
  2. METOLATE [Concomitant]
     Route: 048
  3. METOLATE [Concomitant]
     Route: 048
     Dates: start: 20130716, end: 20131008
  4. CELECOX [Concomitant]
     Dosage: DAILY DOSE: 400 MG
     Route: 048
     Dates: end: 20131014

REACTIONS (1)
  - Systemic lupus erythematosus [Recovering/Resolving]
